FAERS Safety Report 15727549 (Version 1)
Quarter: 2018Q4

REPORT INFORMATION
  Report Type: Spontaneous
  Country: AR (occurrence: AR)
  Receive Date: 20181217
  Receipt Date: 20181217
  Transmission Date: 20190205
  Serious: Yes (Hospitalization)
  Sender: FDA-Public Use
  Company Number: AR-PFIZER INC-2018512064

PATIENT
  Age: 65 Year
  Sex: Female

DRUGS (2)
  1. FULVESTRANT. [Concomitant]
     Active Substance: FULVESTRANT
     Dosage: UNK
  2. IBRANCE [Suspect]
     Active Substance: PALBOCICLIB

REACTIONS (1)
  - Unresponsive to stimuli [Unknown]
